FAERS Safety Report 4353468-3 (Version None)
Quarter: 2004Q2

REPORT INFORMATION
  Report Type: 
  Country: None (occurrence: None)
  Receive Date: 20040430
  Receipt Date: 20040420
  Transmission Date: 20050107
  Serious: Yes (Other)
  Sender: FDA-Public Use
  Company Number: US-JNJFOC-20040303406

PATIENT
  Age: 50 Year
  Sex: Male
  Weight: 89.8122 kg

DRUGS (8)
  1. REMICADE [Suspect]
     Indication: RHEUMATOID ARTHRITIS
     Dosage: 300 MG, INTRAVENOUS
     Route: 042
     Dates: start: 20031226
  2. REMICADE [Suspect]
     Indication: RHEUMATOID ARTHRITIS
     Dosage: 300 MG, INTRAVENOUS
     Route: 042
     Dates: start: 20040121
  3. DARVACET (PROPACET) [Concomitant]
  4. METHOTREXATE [Concomitant]
  5. CELEBREX [Concomitant]
  6. NEXIUM [Concomitant]
  7. FOLIC ACID [Concomitant]
  8. IMODIUM [Concomitant]

REACTIONS (4)
  - DIARRHOEA [None]
  - IMPAIRED HEALING [None]
  - RASH [None]
  - SQUAMOUS CELL CARCINOMA [None]
